FAERS Safety Report 13126325 (Version 3)
Quarter: 2017Q2

REPORT INFORMATION
  Report Type: Spontaneous
  Country: US (occurrence: US)
  Receive Date: 20170118
  Receipt Date: 20170602
  Transmission Date: 20170830
  Serious: Yes (Hospitalization, Other)
  Sender: FDA-Public Use
  Company Number: US-ASTRAZENECA-2017SE03327

PATIENT
  Age: 603 Month
  Sex: Male
  Weight: 95.1 kg

DRUGS (9)
  1. NEXIUM [Suspect]
     Active Substance: ESOMEPRAZOLE MAGNESIUM
     Route: 048
     Dates: start: 20151019
  2. CYCLOSPORINE. [Concomitant]
     Active Substance: CYCLOSPORINE
  3. AZITHROMYCIN ANHYDROUS. [Concomitant]
     Active Substance: AZITHROMYCIN ANHYDROUS
     Dates: start: 20150511
  4. SIROLIMUS. [Concomitant]
     Active Substance: SIROLIMUS
  5. PREDNISOLONE. [Concomitant]
     Active Substance: PREDNISOLONE
     Dates: start: 20151009
  6. NEXIUM [Suspect]
     Active Substance: ESOMEPRAZOLE MAGNESIUM
     Route: 048
     Dates: start: 201309, end: 201604
  7. METOPROLOL. [Concomitant]
     Active Substance: METOPROLOL
     Dates: start: 20150515
  8. SIMVASTATIN. [Concomitant]
     Active Substance: SIMVASTATIN
     Dates: start: 20150908
  9. SIROLIMUS. [Concomitant]
     Active Substance: SIROLIMUS

REACTIONS (3)
  - Renal impairment [Unknown]
  - Chronic kidney disease [Unknown]
  - Acute kidney injury [Unknown]

NARRATIVE: CASE EVENT DATE: 201405
